FAERS Safety Report 21770447 (Version 1)
Quarter: 2022Q4

REPORT INFORMATION
  Report Type: Report from Study
  Country: IN (occurrence: IN)
  Receive Date: 20221223
  Receipt Date: 20221223
  Transmission Date: 20230113
  Serious: Yes (Other)
  Sender: FDA-Public Use
  Company Number: IN-SUN PHARMACEUTICAL INDUSTRIES LTD-2022R1-370291

PATIENT

DRUGS (3)
  1. CETRORELIX [Suspect]
     Active Substance: CETRORELIX
     Indication: Gonadotrophin deficiency
     Dosage: 0.25 MILLIGRAM
     Route: 058
  2. LEUPROLIDE ACETATE [Suspect]
     Active Substance: LEUPROLIDE ACETATE
     Indication: Oocyte harvest
     Dosage: 2 MILLIGRAM
     Route: 058
  3. PROGESTERONE [Suspect]
     Active Substance: PROGESTERONE
     Indication: Supplementation therapy
     Dosage: 800 MILLIGRAM MICRONIZED
     Route: 065

REACTIONS (1)
  - Ovarian hyperstimulation syndrome [Unknown]
